FAERS Safety Report 13363221 (Version 1)
Quarter: 2017Q1

REPORT INFORMATION
  Report Type: Spontaneous
  Country: US (occurrence: US)
  Receive Date: 20170323
  Receipt Date: 20170323
  Transmission Date: 20170429
  Serious: No
  Sender: FDA-Public Use
  Company Number: US-BAYER-2017-055229

PATIENT
  Age: 76 Year
  Sex: Male
  Weight: 62 kg

DRUGS (2)
  1. CLARITIN [Suspect]
     Active Substance: LORATADINE
     Indication: NASOPHARYNGITIS
  2. CLARITIN [Suspect]
     Active Substance: LORATADINE
     Indication: HYPERSENSITIVITY
     Dosage: 1 TABLET A DAY
     Route: 048
     Dates: start: 2010

REACTIONS (2)
  - Drug ineffective [Unknown]
  - Nervousness [Unknown]

NARRATIVE: CASE EVENT DATE: 2010
